FAERS Safety Report 25725850 (Version 1)
Quarter: 2025Q3

REPORT INFORMATION
  Report Type: Spontaneous
  Country: US (occurrence: US)
  Receive Date: 20250826
  Receipt Date: 20250826
  Transmission Date: 20251021
  Serious: No
  Sender: BRISTOL-MYERS SQUIBB COMPANY
  Company Number: US-BRISTOL-MYERS SQUIBB COMPANY-2025-118143

PATIENT
  Age: 68 Year

DRUGS (2)
  1. KENALOG-40 [Suspect]
     Active Substance: TRIAMCINOLONE ACETONIDE
     Indication: Rotator cuff syndrome
  2. HUMALOG [Concomitant]
     Active Substance: INSULIN LISPRO
     Indication: Type 2 diabetes mellitus

REACTIONS (6)
  - Blood glucose abnormal [Unknown]
  - Restless legs syndrome [Unknown]
  - Insomnia [Unknown]
  - Feeling of body temperature change [Unknown]
  - Headache [Unknown]
  - Off label use [Unknown]
